FAERS Safety Report 20919521 (Version 9)
Quarter: 2023Q1

REPORT INFORMATION
  Report Type: Report from Study
  Country: US (occurrence: US)
  Receive Date: 20220606
  Receipt Date: 20230314
  Transmission Date: 20230418
  Serious: Yes (Hospitalization, Other)
  Sender: FDA-Public Use
  Company Number: US-EXELIXIS-XL18421039231

PATIENT

DRUGS (47)
  1. CABOZANTINIB [Suspect]
     Active Substance: CABOZANTINIB
     Indication: Lung cancer metastatic
     Dosage: 40 MG, QD
     Route: 048
     Dates: start: 20210226, end: 20210815
  2. CABOZANTINIB [Suspect]
     Active Substance: CABOZANTINIB
     Dosage: 20 MG
     Route: 048
     Dates: end: 20210815
  3. ATEZOLIZUMAB [Suspect]
     Active Substance: ATEZOLIZUMAB
     Indication: Lung cancer metastatic
     Dosage: 1200 MG, Q3WEEKS
     Route: 041
     Dates: start: 20210226, end: 20210815
  4. MS CONTIN [Concomitant]
     Active Substance: MORPHINE SULFATE
     Indication: Bone pain
     Dosage: 15 MG, PRN
     Route: 048
     Dates: start: 20210115
  5. BISACODYL [Concomitant]
     Active Substance: BISACODYL
     Indication: Constipation
     Dosage: 10 MG, PRN
     Route: 054
     Dates: start: 202102, end: 20210317
  6. BISACODYL [Concomitant]
     Active Substance: BISACODYL
     Dosage: 10 MG, PRN
     Route: 054
     Dates: start: 20210408
  7. POLYETHYLENE GLYCOL 3350 [Concomitant]
     Active Substance: POLYETHYLENE GLYCOL 3350
     Indication: Constipation
     Dosage: 17 G, PRN
     Route: 048
     Dates: start: 202102, end: 20210415
  8. COMPAZINE [Concomitant]
     Active Substance: PROCHLORPERAZINE MALEATE
     Indication: Nausea
     Dosage: 10 MG, PRN
     Route: 048
     Dates: start: 202101
  9. ZOFRAN [Concomitant]
     Active Substance: ONDANSETRON HYDROCHLORIDE
     Indication: Nausea
     Dosage: 8 MG, PRN
     Route: 048
     Dates: start: 202006, end: 20210414
  10. DRONABINOL [Concomitant]
     Active Substance: DRONABINOL
     Indication: Decreased appetite
     Dosage: 2.5 MG, BID
     Route: 048
     Dates: start: 20210210, end: 20210319
  11. DRONABINOL [Concomitant]
     Active Substance: DRONABINOL
     Dosage: 2.5 MG, BID
     Route: 048
     Dates: start: 20210326, end: 20210329
  12. SENNOSIDES [Concomitant]
     Active Substance: SENNOSIDES
     Indication: Constipation
     Dosage: 8.6 MG PRN
     Route: 048
     Dates: start: 20210119, end: 20210317
  13. ZOCOR [Concomitant]
     Active Substance: SIMVASTATIN
     Indication: Hyperlipidaemia
     Dosage: 20 MG, QD
     Route: 048
  14. ECOTRIN [Concomitant]
     Active Substance: ASPIRIN
     Dosage: 81 MG, QD
     Route: 048
     Dates: start: 2016
  15. FOLIC ACID [Concomitant]
     Active Substance: FOLIC ACID
     Dosage: 1 MG, QD
     Route: 048
     Dates: start: 202006
  16. VITAMIN B12 [Concomitant]
     Active Substance: CYANOCOBALAMIN
     Dosage: 1000 UG
     Route: 030
     Dates: start: 20200520
  17. ZOMETA [Concomitant]
     Active Substance: ZOLEDRONIC ACID
     Indication: Metastases to bone
     Dosage: 4 MG
     Route: 042
     Dates: start: 20200723
  18. METOCLOPRAMIDE [Concomitant]
     Active Substance: METOCLOPRAMIDE
     Indication: Nausea
     Dosage: 10 MG, QD
     Route: 048
     Dates: start: 20210308
  19. LEVOTHYROXINE [Concomitant]
     Active Substance: LEVOTHYROXINE
     Indication: Hypothyroidism
     Dosage: 25 UG
     Route: 048
     Dates: start: 20210317
  20. TRIAMCINOLONE ACETONIDE [Concomitant]
     Active Substance: TRIAMCINOLONE ACETONIDE
     Indication: Dermatitis
     Dosage: 0.1 %, BID
     Route: 061
     Dates: start: 20210202
  21. VANCOMYCIN [Concomitant]
     Active Substance: VANCOMYCIN
     Indication: Sepsis
     Dosage: 1.25 G, QD
     Route: 042
     Dates: start: 20210511, end: 20210511
  22. ZOSYN [Concomitant]
     Active Substance: PIPERACILLIN SODIUM\TAZOBACTAM SODIUM
     Indication: Sepsis
     Dosage: 4.5 G, QD
     Route: 042
     Dates: start: 20210511, end: 20210511
  23. CEFEPIME [Concomitant]
     Active Substance: CEFEPIME HYDROCHLORIDE
     Indication: Sepsis
     Dosage: 2 G, QD
     Route: 042
     Dates: start: 20210511, end: 20210511
  24. PREDNISONE [Concomitant]
     Active Substance: PREDNISONE
     Indication: Pleural effusion
     Dosage: 20 MG, QD
     Route: 048
     Dates: start: 20210403, end: 20210510
  25. PREDNISONE [Concomitant]
     Active Substance: PREDNISONE
     Indication: Pneumonitis
     Dosage: 40 MG, QD
     Route: 048
     Dates: start: 20210409, end: 20210420
  26. BETAMETHASONE DIPROPIONATE [Concomitant]
     Active Substance: BETAMETHASONE DIPROPIONATE
     Indication: Cutaneous vasculitis
     Dosage: UNK
     Route: 061
     Dates: start: 20210224
  27. TYLENOL [Concomitant]
     Active Substance: ACETAMINOPHEN
     Indication: Pain
     Dosage: 500 MG, PRN
     Route: 048
     Dates: start: 20210422
  28. CEFTRIAXONE SODIUM [Concomitant]
     Active Substance: CEFTRIAXONE SODIUM
     Dosage: 2 G, QD
     Route: 042
     Dates: start: 20210326, end: 20210327
  29. AZITHROMYCIN [Concomitant]
     Active Substance: AZITHROMYCIN
     Indication: Pleural effusion
     Dosage: 500 MG, QD
     Route: 048
     Dates: start: 20210327, end: 20210401
  30. SOLU-MEDROL [Concomitant]
     Active Substance: METHYLPREDNISOLONE SODIUM SUCCINATE
     Indication: Hypoxia
     Dosage: UNK QD
     Route: 042
     Dates: start: 20210401, end: 20210403
  31. OXYGEN [Concomitant]
     Active Substance: OXYGEN
     Indication: Hyperglycaemia
     Dosage: UNK, PRN
     Route: 055
     Dates: start: 20210326, end: 20210403
  32. OXYGEN [Concomitant]
     Active Substance: OXYGEN
     Indication: Hypoxia
  33. BACTRIM [Concomitant]
     Active Substance: SULFAMETHOXAZOLE\TRIMETHOPRIM
     Indication: Urinary tract infection
     Dosage: 160 MG, BID
     Route: 048
     Dates: start: 20210410, end: 20210414
  34. INSULIN NOS [Concomitant]
     Active Substance: INSULIN NOS
     Indication: Hyperglycaemia
     Dosage: 2 U, PRN
     Route: 058
     Dates: start: 20210326, end: 20210403
  35. MIRALAX [Concomitant]
     Active Substance: POLYETHYLENE GLYCOL 3350
     Indication: Constipation
     Dosage: 17 G,1 IN 1 AS REQUIRED
     Route: 048
     Dates: start: 202102, end: 20210415
  36. MARINOL [Concomitant]
     Active Substance: DRONABINOL
     Dosage: 2.5 MG, BID
     Route: 048
     Dates: start: 20210210
  37. MORPHINE SULFATE [Concomitant]
     Active Substance: MORPHINE SULFATE
     Indication: Bone pain
     Dosage: 15 MG, PRN
     Route: 048
     Dates: start: 20210115
  38. DOCETAXEL [Concomitant]
     Active Substance: DOCETAXEL
     Dosage: 130 MG
     Dates: start: 20210520, end: 20210702
  39. MORPHINE [Concomitant]
     Active Substance: MORPHINE
     Indication: Bone pain
     Dosage: 15 MG, QD PRN
     Route: 048
     Dates: start: 20210115
  40. PROCHLORPERAZINE MALEATE [Concomitant]
     Active Substance: PROCHLORPERAZINE MALEATE
     Indication: Nausea
     Dosage: 10 MG, QD, PRN
     Route: 048
     Dates: start: 202101
  41. ONDANSETRON [Concomitant]
     Active Substance: ONDANSETRON
     Dosage: 8 MG, QD, PRN
     Route: 048
     Dates: start: 202006, end: 20210414
  42. SIMVASTATIN [Concomitant]
     Active Substance: SIMVASTATIN
     Indication: Hyperlipidaemia
     Dosage: 20 MG, QD
     Route: 048
  43. ASPIRIN [Concomitant]
     Active Substance: ASPIRIN
     Dosage: 81 MG, QD
     Route: 048
     Dates: start: 2016
  44. SULFAMETHOXAZOLE\TRIMETHOPRIM [Concomitant]
     Active Substance: SULFAMETHOXAZOLE\TRIMETHOPRIM
     Indication: Urinary tract infection
     Dosage: 160 MG, BID
     Route: 048
     Dates: start: 20210410, end: 20210414
  45. MORPHINE SULFATE [Concomitant]
     Active Substance: MORPHINE SULFATE
  46. VANCOCIN [Concomitant]
     Active Substance: VANCOMYCIN HYDROCHLORIDE
  47. TRIAMCINOLONE [Concomitant]
     Active Substance: TRIAMCINOLONE

REACTIONS (5)
  - Lymphocyte count decreased [Not Recovered/Not Resolved]
  - White blood cell count decreased [Recovered/Resolved]
  - Neutrophil count decreased [Recovered/Resolved]
  - Pneumonitis [Not Recovered/Not Resolved]
  - Sepsis [Recovered/Resolved]

NARRATIVE: CASE EVENT DATE: 20210326
